FAERS Safety Report 5109226-5 (Version None)
Quarter: 2006Q3

REPORT INFORMATION
  Report Type: 
  Country: None (occurrence: None)
  Receive Date: 20060918
  Receipt Date: 20060820
  Transmission Date: 20061208
  Serious: Yes (Other)
  Sender: FDA-Public Use
  Company Number: COM # 06-137

PATIENT
  Age: 42 Year
  Sex: Female
  Weight: 64.4108 kg

DRUGS (1)
  1. MIDRIN CAPSULES [Suspect]
     Indication: HEADACHE

REACTIONS (1)
  - DEHYDRATION [None]
